FAERS Safety Report 6048635-7 (Version None)
Quarter: 2009Q1

REPORT INFORMATION
  Report Type: 
  Country: None (occurrence: None)
  Receive Date: 20090121
  Receipt Date: 20090121
  Transmission Date: 20090719
  Serious: Yes (Hospitalization)
  Sender: FDA-Public Use
  Company Number: None

PATIENT
  Age: 58 Year
  Sex: Female
  Weight: 80.2867 kg

DRUGS (2)
  1. IRBESARTAN [Suspect]
     Indication: HYPERTENSION
     Dosage: 300 MG DAILY PO
     Route: 048
  2. HYDROCHLOROTHIAZIDE [Suspect]
     Indication: HYPERTENSION
     Dosage: 25 MG DAILY PO
     Route: 048

REACTIONS (3)
  - HYPOKALAEMIA [None]
  - RASH [None]
  - SWELLING FACE [None]
